FAERS Safety Report 7651210-1 (Version None)
Quarter: 2011Q3

REPORT INFORMATION
  Report Type: 
  Country: None (occurrence: None)
  Receive Date: 20110802
  Receipt Date: 20110726
  Transmission Date: 20111222
  Serious: Yes (Disabling, Other)
  Sender: FDA-Public Use
  Company Number: GB-PFIZER INC-2011170557

PATIENT
  Age: 72 Year
  Sex: Female
  Weight: 49 kg

DRUGS (10)
  1. CLENIL [Concomitant]
     Route: 055
  2. PREGABALIN [Suspect]
     Dosage: 75 MG, 2X/DAY
     Route: 048
     Dates: start: 20110215, end: 20110704
  3. PARACETAMOL [Concomitant]
     Dosage: 500 MG, UNK
  4. LANSOPRAZOLE [Concomitant]
     Dosage: 15 MG, 1X/DAY
  5. SALBUTAMOL [Concomitant]
     Dosage: UNK
     Route: 055
  6. BACLOFEN [Concomitant]
     Dosage: 1 DF, 3X/DAY
  7. CORSODYL [Concomitant]
     Dosage: 10 ML, 2X/DAY
  8. ORAMORPH SR [Concomitant]
     Dosage: 2.5 ML, AS NEEDED
  9. FENTANYL [Concomitant]
     Dosage: 50 UG, 1X/HOUR
  10. FUROSEMIDE [Concomitant]
     Dosage: 20 MG, 1X/DAY

REACTIONS (3)
  - DERMATITIS BULLOUS [None]
  - SKIN EXFOLIATION [None]
  - PAIN [None]
